FAERS Safety Report 8607215-7 (Version None)
Quarter: 2012Q3

REPORT INFORMATION
  Report Type: 
  Country: None (occurrence: None)
  Receive Date: 20120821
  Receipt Date: 20120816
  Transmission Date: 20120928
  Serious: No
  Sender: FDA-Public Use
  Company Number: US-BIOGENIDEC-2012BI032087

PATIENT
  Sex: Female

DRUGS (3)
  1. TYSABRI [Suspect]
     Route: 042
     Dates: start: 20120101, end: 20120101
  2. TYSABRI [Suspect]
     Indication: MULTIPLE SCLEROSIS
     Route: 042
     Dates: start: 20090505, end: 20120101
  3. TYSABRI [Suspect]
     Route: 042
     Dates: start: 20120101

REACTIONS (16)
  - PROCEDURAL PAIN [None]
  - WHITE BLOOD CELL COUNT INCREASED [None]
  - BLOOD URINE PRESENT [None]
  - NEPHROLITHIASIS [None]
  - NAUSEA [None]
  - URINARY TRACT INFECTION [None]
  - MUSCLE SPASTICITY [None]
  - HAEMORRHAGE URINARY TRACT [None]
  - FALL [None]
  - VOMITING [None]
  - CHROMATURIA [None]
  - FLANK PAIN [None]
  - BACTERIAL TEST [None]
  - FATIGUE [None]
  - MIGRAINE [None]
  - GAIT DISTURBANCE [None]
